FAERS Safety Report 17174576 (Version 1)
Quarter: 2019Q4

REPORT INFORMATION
  Report Type: Spontaneous
  Country: US (occurrence: US)
  Receive Date: 20191219
  Receipt Date: 20191219
  Transmission Date: 20200122
  Serious: No
  Sender: FDA-Public Use
  Company Number: US-UCBSA-118217

PATIENT
  Age: 60 Year
  Sex: Female
  Weight: 68.94 kg

DRUGS (1)
  1. CIMZIA [Suspect]
     Active Substance: CERTOLIZUMAB PEGOL
     Indication: RHEUMATOID ARTHRITIS
     Dosage: CIMZIA 400MG ONCE EVERY 2 WEEKS FOR 3 DOSES AND THEN 400MG ONCE EVERY 28 DAYS FOR RA
     Route: 058
     Dates: start: 20140319

REACTIONS (2)
  - Injection site discolouration [Not Recovered/Not Resolved]
  - Injection site pain [Not Recovered/Not Resolved]

NARRATIVE: CASE EVENT DATE: 20140319
